FAERS Safety Report 8315487-1 (Version None)
Quarter: 2012Q2

REPORT INFORMATION
  Report Type: 
  Country: None (occurrence: None)
  Receive Date: 20120426
  Receipt Date: 20120417
  Transmission Date: 20120825
  Serious: Yes (Hospitalization)
  Sender: FDA-Public Use
  Company Number: NL-MEDIMMUNE-MEDI-0014267

PATIENT
  Sex: Female
  Weight: 6.3 kg

DRUGS (2)
  1. SYNAGIS [Suspect]
     Indication: HEART DISEASE CONGENITAL
     Route: 030
     Dates: start: 20110910, end: 20111109
  2. SYNAGIS [Suspect]
     Route: 030
     Dates: start: 20111217, end: 20111217

REACTIONS (1)
  - GASTROINTESTINAL DISORDER [None]
